FAERS Safety Report 9803539 (Version 1)
Quarter: 2014Q1

REPORT INFORMATION
  Report Type: Spontaneous
  Country: US (occurrence: US)
  Receive Date: 20140108
  Receipt Date: 20140108
  Transmission Date: 20141002
  Serious: No
  Sender: FDA-Public Use
  Company Number: US-GLAXOSMITHKLINE-A1005695A

PATIENT
  Age: 72 Year
  Sex: Female

DRUGS (2)
  1. LOVAZA [Suspect]
     Indication: BLOOD CHOLESTEROL
     Dosage: 2CAP TWICE PER DAY
     Route: 048
     Dates: start: 2010
  2. BLOOD PRESSURE MEDICATION [Concomitant]

REACTIONS (4)
  - Nausea [Recovered/Resolved]
  - Skin odour abnormal [Unknown]
  - Breath odour [Unknown]
  - Product quality issue [Unknown]
